FAERS Safety Report 9003597 (Version 4)
Quarter: 2013Q2

REPORT INFORMATION
  Report Type: Report from Study
  Country: RO (occurrence: RO)
  Receive Date: 20130108
  Receipt Date: 20130508
  Transmission Date: 20140414
  Serious: Yes (Death)
  Sender: FDA-Public Use
  Company Number: RO-ROCHE-1177224

PATIENT
  Age: 42 Year
  Sex: Female
  Weight: 81 kg

DRUGS (4)
  1. VEMURAFENIB [Suspect]
     Indication: MALIGNANT MELANOMA
     Dosage: LAST DOSE PRIOR TO THE SAE ON 28/DEC/2012
     Route: 048
     Dates: start: 20120905, end: 20121228
  2. PARACETAMOL [Concomitant]
     Route: 065
     Dates: start: 20120514, end: 20121228
  3. ARTHROTEC [Concomitant]
     Route: 065
     Dates: start: 20120514, end: 20121228
  4. KETOPROFEN [Concomitant]
     Route: 065
     Dates: start: 20121017, end: 20121228

REACTIONS (1)
  - Cerebral haematoma [Fatal]
